FAERS Safety Report 7213485-2 (Version None)
Quarter: 2011Q1

REPORT INFORMATION
  Report Type: 
  Country: None (occurrence: None)
  Receive Date: 20110106
  Receipt Date: 20101223
  Transmission Date: 20110831
  Serious: Yes (Hospitalization, Other)
  Sender: FDA-Public Use
  Company Number: PHHY2010US87583

PATIENT
  Age: 37 Year
  Sex: Female

DRUGS (1)
  1. PHENTERMINE [Suspect]
     Indication: WEIGHT DECREASED
     Dosage: 37.5 MG, UNK

REACTIONS (8)
  - GASTROINTESTINAL SOUNDS ABNORMAL [None]
  - COLITIS [None]
  - INTESTINAL GANGRENE [None]
  - COLITIS ISCHAEMIC [None]
  - RECTAL HAEMORRHAGE [None]
  - LAPAROTOMY [None]
  - ABDOMINAL TENDERNESS [None]
  - HAEMATOCHEZIA [None]
